FAERS Safety Report 6042322-7 (Version None)
Quarter: 2009Q1

REPORT INFORMATION
  Report Type: 
  Country: None (occurrence: None)
  Receive Date: 20090116
  Receipt Date: 20090107
  Transmission Date: 20090719
  Serious: Yes (Other)
  Sender: FDA-Public Use
  Company Number: GB-JNJFOC-20081001775

PATIENT
  Age: 35 Year
  Sex: Female

DRUGS (7)
  1. REMICADE [Suspect]
     Indication: BEHCET'S SYNDROME
     Route: 042
  2. METHOTREXATE [Concomitant]
     Indication: BEHCET'S SYNDROME
  3. FOSAMAX [Concomitant]
  4. TERBINAFINE HCL [Concomitant]
  5. HORMONE REPLACEMENT THERAPY [Concomitant]
  6. AMITRIPTYLINE HCL [Concomitant]
  7. FOLIC ACID [Concomitant]

REACTIONS (1)
  - HYPERTHYROIDISM [None]
